FAERS Safety Report 10880842 (Version 3)
Quarter: 2015Q2

REPORT INFORMATION
  Report Type: Spontaneous
  Country: IN (occurrence: None)
  Receive Date: 20150225
  Receipt Date: 20150416
  Transmission Date: 20150821
  Serious: Yes (Hospitalization)
  Sender: FDA-Public Use
  Company Number: KAD201502-000306

PATIENT
  Age: 57 Year
  Sex: Male
  Weight: 60.1 kg

DRUGS (2)
  1. SOFOSBUVIR (SOFOSBUVIR) [Suspect]
     Active Substance: SOFOSBUVIR
     Route: 048
     Dates: start: 20141202, end: 20150213
  2. RIBAVIRIN (RIBAVIRIN) [Suspect]
     Active Substance: RIBAVIRIN
     Route: 048
     Dates: start: 20141202, end: 20150213

REACTIONS (11)
  - Intestinal obstruction [None]
  - Blood sodium decreased [None]
  - Heart rate increased [None]
  - Blood potassium increased [None]
  - Clubbing [None]
  - Blood glucose increased [None]
  - Haemoglobin increased [None]
  - Haematocrit increased [None]
  - Platelet count decreased [None]
  - White blood cell count increased [None]
  - Oedema peripheral [None]

NARRATIVE: CASE EVENT DATE: 20150212
